FAERS Safety Report 6265973-3 (Version None)
Quarter: 2009Q3

REPORT INFORMATION
  Report Type: 
  Country: None (occurrence: None)
  Receive Date: 20090713
  Receipt Date: 20090710
  Transmission Date: 20100115
  Serious: Yes (Death)
  Sender: FDA-Public Use
  Company Number: US-ASTRAZENECA-2009UW14059

PATIENT
  Age: 86 Year
  Sex: Male

DRUGS (2)
  1. CASODEX [Suspect]
     Route: 048
  2. LUPRON [Concomitant]

REACTIONS (2)
  - CARDIAC DISORDER [None]
  - PROSTATE CANCER [None]
